FAERS Safety Report 8187225-7 (Version None)
Quarter: 2012Q1

REPORT INFORMATION
  Report Type: 
  Country: None (occurrence: None)
  Receive Date: 20120302
  Receipt Date: 20110518
  Transmission Date: 20120608
  Serious: Yes (Death)
  Sender: FDA-Public Use
  Company Number: DKLU1077159

PATIENT
  Age: 24 Year
  Sex: Male

DRUGS (2)
  1. MOCLOBEMIDE (MOCLOBEMIDE) [Suspect]
     Indication: PRODUCT USED FOR UNKNOWN INDICATION
  2. DESOXYN [Suspect]
     Indication: PRODUCT USED FOR UNKNOWN INDICATION

REACTIONS (4)
  - BRAIN OEDEMA [None]
  - TOXICITY TO VARIOUS AGENTS [None]
  - SUDDEN DEATH [None]
  - DRUG INTERACTION [None]
